FAERS Safety Report 9399177 (Version 1)
Quarter: 2013Q3

REPORT INFORMATION
  Report Type: Spontaneous
  Country: US (occurrence: None)
  Receive Date: 20130709
  Receipt Date: 20130709
  Transmission Date: 20140515
  Serious: Yes (Hospitalization)
  Sender: FDA-Public Use
  Company Number: 2013P1011003

PATIENT
  Age: 51 Year
  Sex: Female
  Weight: 76 kg

DRUGS (11)
  1. CIPROFLOXACIN [Suspect]
     Indication: PSEUDOMONAS BRONCHITIS
     Route: 042
     Dates: start: 20130328
  2. MEROPENEM [Suspect]
     Indication: PSEUDOMONAS BRONCHITIS
     Route: 042
     Dates: start: 20130328
  3. PREDNISOLONE [Concomitant]
  4. OMEPRAZOLE [Concomitant]
  5. CLEXANE [Concomitant]
  6. NASONEX [Concomitant]
  7. FLUOXETINE [Concomitant]
  8. UNSPECIFIED INGREDIENT [Concomitant]
  9. CARBOCYSTEINE [Concomitant]
  10. FLUCONAZOLE [Concomitant]
  11. GANFORT [Concomitant]

REACTIONS (5)
  - Chest pain [None]
  - Dyspnoea [None]
  - Wheezing [None]
  - Flushing [None]
  - Drug interaction [None]
